FAERS Safety Report 7864065-7 (Version None)
Quarter: 2011Q4

REPORT INFORMATION
  Report Type: 
  Country: None (occurrence: None)
  Receive Date: 20111028
  Receipt Date: 20111019
  Transmission Date: 20120403
  Serious: Yes (Other)
  Sender: FDA-Public Use
  Company Number: US-JNJFOC-20090905444

PATIENT
  Sex: Female
  Weight: 50.8 kg

DRUGS (11)
  1. BENADRYL [Concomitant]
  2. REMICADE [Suspect]
     Route: 042
     Dates: start: 20000118
  3. REMICADE [Suspect]
     Route: 042
     Dates: start: 20000118
  4. REMICADE [Suspect]
     Indication: RHEUMATOID ARTHRITIS
     Route: 042
     Dates: start: 20040101, end: 20040101
  5. REMICADE [Suspect]
     Indication: CROHN'S DISEASE
     Route: 042
     Dates: start: 20040101, end: 20040101
  6. HEPARIN [Suspect]
     Indication: INTRAVENOUS CATHETER MANAGEMENT
  7. COX-2 SELECTIVE INHIBITOR [Suspect]
     Indication: ILL-DEFINED DISORDER
  8. REMICADE [Suspect]
     Route: 042
     Dates: start: 20031222
  9. MORPHINE SULFATE [Concomitant]
     Indication: PALLIATIVE CARE
  10. REMICADE [Suspect]
     Route: 042
     Dates: start: 20031222
  11. OXYCODONE HCL [Concomitant]
     Indication: PALLIATIVE CARE

REACTIONS (33)
  - VOMITING [None]
  - ATAXIA [None]
  - APHAGIA [None]
  - CARDIAC DISORDER [None]
  - PRODUCT QUALITY ISSUE [None]
  - HAEMORRHAGIC DISORDER [None]
  - LARGE INTESTINAL ULCER [None]
  - BRAIN NEOPLASM [None]
  - HYPOAESTHESIA [None]
  - NEOPLASM MALIGNANT [None]
  - RABIES [None]
  - SKIN ATROPHY [None]
  - DUODENAL ULCER [None]
  - ANIMAL BITE [None]
  - BLOOD DISORDER [None]
  - SERUM SICKNESS [None]
  - ORGAN FAILURE [None]
  - GASTROINTESTINAL DISORDER [None]
  - OESOPHAGEAL ULCER [None]
  - RASH [None]
  - PYREXIA [None]
  - BLINDNESS [None]
  - JEJUNAL ULCER [None]
  - VARIANT CREUTZFELDT-JAKOB DISEASE [None]
  - HAEMATOCHEZIA [None]
  - PALLOR [None]
  - BRAIN NEOPLASM MALIGNANT [None]
  - NO THERAPEUTIC RESPONSE [None]
  - VASCULAR COMPLICATION ASSOCIATED WITH DEVICE [None]
  - HAEMOPHILIA [None]
  - HEART RATE INCREASED [None]
  - FUNGAL INFECTION [None]
  - WEIGHT INCREASED [None]
